FAERS Safety Report 7103154-1 (Version None)
Quarter: 2010Q4

REPORT INFORMATION
  Report Type: 
  Country: None (occurrence: None)
  Receive Date: 20101115
  Receipt Date: 20101103
  Transmission Date: 20110411
  Serious: Yes (Hospitalization, Other)
  Sender: FDA-Public Use
  Company Number: US-SANOFI-AVENTIS-2010SA067406

PATIENT
  Age: 68 Year
  Sex: Female

DRUGS (4)
  1. LANTUS [Suspect]
     Dosage: DOSE:35 UNIT(S)
     Route: 058
     Dates: start: 20070101
  2. LANTUS [Suspect]
     Route: 058
     Dates: start: 20050101
  3. LANTUS [Suspect]
     Dosage: 30-40 UNITS AT BEDTIME
     Route: 058
  4. SOLOSTAR [Suspect]

REACTIONS (8)
  - BLOOD GLUCOSE INCREASED [None]
  - CARDIAC FAILURE CONGESTIVE [None]
  - DYSKINESIA [None]
  - HYPOGLYCAEMIA [None]
  - KETOACIDOSIS [None]
  - RENAL FAILURE [None]
  - SLEEP APNOEA SYNDROME [None]
  - SLEEP DISORDER [None]
